FAERS Safety Report 9106847 (Version 1)
Quarter: 2013Q1

REPORT INFORMATION
  Report Type: Spontaneous
  Country: US (occurrence: US)
  Receive Date: 20130222
  Receipt Date: 20130222
  Transmission Date: 20140127
  Serious: Yes (Other)
  Sender: FDA-Public Use
  Company Number: US-TEVA-345524USA

PATIENT
  Sex: 0

DRUGS (3)
  1. TREANDA [Suspect]
     Indication: NON-HODGKIN^S LYMPHOMA
     Route: 042
  2. RITUXIMAB [Concomitant]
  3. ALLOPURINOL [Concomitant]
     Indication: PROPHYLAXIS

REACTIONS (1)
  - Stevens-Johnson syndrome [Unknown]
